FAERS Safety Report 4385602-3 (Version None)
Quarter: 2004Q2

REPORT INFORMATION
  Report Type: 
  Country: None (occurrence: None)
  Receive Date: 20040628
  Receipt Date: 20040616
  Transmission Date: 20050107
  Serious: Yes (Life-Threatening)
  Sender: FDA-Public Use
  Company Number: 200412367FR

PATIENT
  Age: 78 Year
  Sex: Female
  Weight: 64 kg

DRUGS (5)
  1. KETEK [Suspect]
     Route: 048
     Dates: start: 20040526, end: 20040528
  2. ASASANTIN [Concomitant]
  3. PRAVASTATIN [Concomitant]
  4. ADALAT [Concomitant]
  5. ATENOLOL [Concomitant]

REACTIONS (4)
  - ARRHYTHMIA [None]
  - BRADYARRHYTHMIA [None]
  - HYPOTENSION [None]
  - SYNCOPE [None]
